FAERS Safety Report 18044483 (Version 1)
Quarter: 2020Q3

REPORT INFORMATION
  Report Type: Spontaneous
  Country: US (occurrence: US)
  Receive Date: 20200720
  Receipt Date: 20200720
  Transmission Date: 20201103
  Serious: Yes (Other)
  Sender: FDA-Public Use
  Company Number: None

PATIENT
  Age: 56 Year
  Sex: Female
  Weight: 106.65 kg

DRUGS (3)
  1. JARDIANCE [Suspect]
     Active Substance: EMPAGLIFLOZIN
     Indication: DIABETES MELLITUS
     Dosage: ??          QUANTITY:30 TABLET(S);?
     Route: 048
     Dates: start: 20200601, end: 20200719
  2. JARDIANCE [Suspect]
     Active Substance: EMPAGLIFLOZIN
     Indication: HEPATITIS
     Dosage: ??          QUANTITY:30 TABLET(S);?
     Route: 048
     Dates: start: 20200601, end: 20200719
  3. CHLONODINE [Concomitant]

REACTIONS (3)
  - Paraesthesia [None]
  - Gout [None]
  - Tinnitus [None]

NARRATIVE: CASE EVENT DATE: 20200715
